FAERS Safety Report 4339542-6 (Version None)
Quarter: 2004Q2

REPORT INFORMATION
  Report Type: 
  Country: None (occurrence: None)
  Receive Date: 20040412
  Receipt Date: 20040330
  Transmission Date: 20050107
  Serious: Yes (Hospitalization)
  Sender: FDA-Public Use
  Company Number: JP-JNJFOC-20040204717

PATIENT
  Age: 40 Year
  Sex: Male

DRUGS (3)
  1. LEUSTATIN [Suspect]
     Indication: LYMPHOMA
     Dosage: 7 MG, 1 IN 1 DAY, INTRAVENOUS DRIP
     Route: 041
     Dates: start: 20030513, end: 20030517
  2. RITUXIMAB (RITUXIMAB) [Suspect]
     Indication: LYMPHOMA
     Dosage: 500 MG, 1 IN 1 DAY
     Dates: start: 20030206, end: 20030206
  3. RITUXIMAB (RITUXIMAB) [Suspect]
     Indication: LYMPHOMA
     Dosage: 500 MG, 1 IN 1 DAY
     Dates: start: 20030507, end: 20030507

REACTIONS (8)
  - BONE MARROW DEPRESSION [None]
  - MYELODYSPLASTIC SYNDROME [None]
  - PLATELET COUNT DECREASED [None]
  - RED BLOOD CELL COUNT DECREASED [None]
  - SCROTAL ULCER [None]
  - STAPHYLOCOCCAL INFECTION [None]
  - STOMATITIS [None]
  - WHITE BLOOD CELL COUNT DECREASED [None]
